FAERS Safety Report 11568477 (Version 1)
Quarter: 2015Q3

REPORT INFORMATION
  Report Type: Not Available
  Country: US (occurrence: US)
  Receive Date: 20150929
  Receipt Date: 20150929
  Transmission Date: 20151125
  Serious: Yes (Other)
  Sender: FDA-Public Use
  Company Number: US-LUPIN PHARMACEUTICALS INC.-E2B_00004219

PATIENT
  Age: 34 Year
  Sex: Female
  Weight: 91 kg

DRUGS (2)
  1. LEVONORGESTREL AND ETHINYL ESTRADIOL TABLETS USP (0.1 MG/0.02 MG) AND [Suspect]
     Active Substance: ETHINYL ESTRADIOL\LEVONORGESTREL
     Indication: POLYCYSTIC OVARIES
     Dosage: (0.1MG/0.02MG) AND (0.01MG)
     Route: 048
     Dates: start: 201410
  2. RESTASIS [Concomitant]
     Active Substance: CYCLOSPORINE
     Indication: DRY EYE
     Dosage: 0.1 % IN EACH EYE
     Route: 047

REACTIONS (3)
  - Muscle spasms [Not Recovered/Not Resolved]
  - Coeliac disease [Not Recovered/Not Resolved]
  - Weight loss poor [Not Recovered/Not Resolved]

NARRATIVE: CASE EVENT DATE: 201503
